FAERS Safety Report 21985190 (Version 1)
Quarter: 2023Q1

REPORT INFORMATION
  Report Type: Other
  Country: None (occurrence: TW)
  Receive Date: 20230213
  Receipt Date: 20230213
  Transmission Date: 20230417
  Serious: Yes (Hospitalization, Other)
  Sender: FDA-Public Use
  Company Number: TW-Spectra Medical Devices, LLC-2137852

PATIENT
  Age: 69 Year
  Sex: Female

DRUGS (2)
  1. SODIUM CHLORIDE [Suspect]
     Active Substance: SODIUM CHLORIDE
     Indication: Blood sodium decreased
     Route: 042
  2. SODIUM BICARBONATE [Suspect]
     Active Substance: SODIUM BICARBONATE
     Route: 065

REACTIONS (1)
  - Osmotic demyelination syndrome [Recovered/Resolved]
